FAERS Safety Report 11862365 (Version 1)
Quarter: 2015Q4

REPORT INFORMATION
  Report Type: Spontaneous
  Country: DE (occurrence: DE)
  Receive Date: 20151223
  Receipt Date: 20151223
  Transmission Date: 20160305
  Serious: Yes (Other)
  Sender: FDA-Public Use
  Company Number: DE-AUROBINDO-AUR-APL-2015-11474

PATIENT
  Age: 36 Year
  Sex: Male
  Weight: 64 kg

DRUGS (7)
  1. ADVAGRAF [Interacting]
     Active Substance: TACROLIMUS
     Indication: RENAL TRANSPLANT
     Dosage: 1 MG, DAILY
     Route: 048
  2. METHYLPREDNISOLON                  /00049601/ [Concomitant]
     Active Substance: METHYLPREDNISOLONE
     Indication: RENAL TRANSPLANT
     Dosage: 8 MG, UNK
     Route: 048
  3. RAMIPRIL. [Concomitant]
     Active Substance: RAMIPRIL
     Indication: PRODUCT USED FOR UNKNOWN INDICATION
     Dosage: 2.5 MG, DAILY
     Route: 048
  4. AMOXICILLIN+CLAVULANIC ACID 875/125MG [Suspect]
     Active Substance: AMOXICILLIN\CLAVULANIC ACID
     Indication: HELICOBACTER INFECTION
     Dosage: 2 DF, DAILY
     Route: 048
     Dates: start: 20151125, end: 20151202
  5. PANTOPRAZOL [Concomitant]
     Active Substance: PANTOPRAZOLE SODIUM
     Indication: OESOPHAGITIS
     Dosage: 40 MG, DAILY
     Route: 048
  6. FUROSEMID                          /00032601/ [Concomitant]
     Active Substance: FUROSEMIDE
     Indication: ASCITES
     Dosage: 40 MG, UNK
     Route: 048
  7. CLARITHROMYCIN. [Interacting]
     Active Substance: CLARITHROMYCIN
     Indication: HELICOBACTER INFECTION
     Dosage: 500 MG, DAILY
     Route: 048
     Dates: start: 20151127, end: 20151202

REACTIONS (4)
  - Drug interaction [Not Recovered/Not Resolved]
  - Vomiting [Not Recovered/Not Resolved]
  - Drug level increased [Not Recovered/Not Resolved]
  - Nausea [Not Recovered/Not Resolved]

NARRATIVE: CASE EVENT DATE: 20151130
